FAERS Safety Report 11912498 (Version 1)
Quarter: 2016Q1

REPORT INFORMATION
  Report Type: Spontaneous
  Country: US (occurrence: US)
  Receive Date: 20160113
  Receipt Date: 20160113
  Transmission Date: 20160526
  Serious: Yes (Other)
  Sender: FDA-Public Use
  Company Number: CHPA2016US000639

PATIENT
  Age: 88 Year
  Sex: Female

DRUGS (1)
  1. VOLTAREN [Suspect]
     Active Substance: DICLOFENAC SODIUM
     Indication: OSTEOARTHRITIS
     Dosage: 2 G, ONCE/SINGLE
     Route: 061
     Dates: start: 20160108, end: 20160108

REACTIONS (6)
  - Hypertension [Recovering/Resolving]
  - Papule [Recovering/Resolving]
  - Pruritus generalised [Recovered/Resolved]
  - Rash generalised [Recovering/Resolving]
  - Generalised erythema [Recovering/Resolving]
  - Drug administered at inappropriate site [Unknown]

NARRATIVE: CASE EVENT DATE: 20160108
